FAERS Safety Report 8832068 (Version 1)
Quarter: 2012Q4

REPORT INFORMATION
  Report Type: 
  Country: FR (occurrence: FR)
  Receive Date: 20121009
  Receipt Date: 20121009
  Transmission Date: 20130627
  Serious: Yes (Other)
  Sender: FDA-Public Use
  Company Number: FR-FRI-1000038915

PATIENT
  Age: 58 Year
  Sex: Male

DRUGS (4)
  1. PROPRANOLOL [Suspect]
  2. ZONISAMIDE [Suspect]
     Indication: EPILEPSY
     Dates: start: 201103
  3. LAMOTRIGINE [Suspect]
  4. VALPROATE [Suspect]

REACTIONS (1)
  - Eosinophilic colitis [Recovered/Resolved]
